FAERS Safety Report 8395347 (Version 2)
Quarter: 2013Q4

REPORT INFORMATION
  Report Type: Spontaneous
  Country: JP (occurrence: JP)
  Receive Date: 20120208
  Receipt Date: 20131218
  Transmission Date: 20140711
  Serious: Yes (Other)
  Sender: FDA-Public Use
  Company Number: 2012SP000320

PATIENT
  Age: 56 Year
  Sex: Male

DRUGS (8)
  1. VANCOMYCIN [Suspect]
     Indication: STAPHYLOCOCCAL INFECTION
  2. CILASTATIN SODIUM W/IMIPENEM [Concomitant]
     Indication: STAPHYLOCOCCAL INFECTION
  3. AMPHOTERICIN B, LIPOSOME [Concomitant]
     Indication: ANTIFUNGAL TREATMENT
  4. TACROLIMUS [Concomitant]
  5. FAMOTIDINE [Concomitant]
  6. URSODIOL [Concomitant]
  7. ACICLOVIR [Concomitant]
  8. FLUCONAZOLE [Concomitant]

REACTIONS (2)
  - Renal failure [Recovering/Resolving]
  - Drug ineffective [Recovering/Resolving]
